FAERS Safety Report 11780561 (Version 2)
Quarter: 2015Q4

REPORT INFORMATION
  Report Type: Report from Study
  Country: US (occurrence: US)
  Receive Date: 20151126
  Receipt Date: 20151222
  Transmission Date: 20160305
  Serious: Yes (Hospitalization, Other)
  Sender: FDA-Public Use
  Company Number: US-AMGEN-USASL2015123900

PATIENT
  Age: 57 Year
  Sex: Female

DRUGS (1)
  1. ENBREL [Suspect]
     Active Substance: ETANERCEPT
     Indication: ARTHROPATHY
     Dosage: 50 MG, QWK
     Route: 065

REACTIONS (11)
  - Headache [Unknown]
  - Nausea [Unknown]
  - Spleen disorder [Unknown]
  - Renal failure [Unknown]
  - Dyspnoea [Unknown]
  - Abdominal pain upper [Unknown]
  - Mental disorder [Unknown]
  - Off label use [Unknown]
  - Insomnia [Unknown]
  - Dizziness [Unknown]
  - Depression [Unknown]

NARRATIVE: CASE EVENT DATE: 20151214
